FAERS Safety Report 13243627 (Version 1)
Quarter: 2017Q1

REPORT INFORMATION
  Report Type: Spontaneous
  Country: US (occurrence: US)
  Receive Date: 20170217
  Receipt Date: 20170217
  Transmission Date: 20170428
  Serious: No
  Sender: FDA-Public Use
  Company Number: None

PATIENT
  Age: 60 Year
  Sex: Female
  Weight: 71.8 kg

DRUGS (1)
  1. ULTRAVIST [Suspect]
     Active Substance: IOPROMIDE
     Indication: MALIGNANT MELANOMA
     Route: 042
     Dates: start: 20160213

REACTIONS (2)
  - Flushing [None]
  - Urticaria [None]

NARRATIVE: CASE EVENT DATE: 20160213
